FAERS Safety Report 7737030-8 (Version None)
Quarter: 2011Q3

REPORT INFORMATION
  Report Type: 
  Country: None (occurrence: None)
  Receive Date: 20110908
  Receipt Date: 20110826
  Transmission Date: 20111222
  Serious: Yes (Hospitalization, Other)
  Sender: FDA-Public Use
  Company Number: US-ELI_LILLY_AND_COMPANY-US201010000431

PATIENT
  Sex: Female

DRUGS (12)
  1. MULTI-VITAMIN [Concomitant]
  2. MULTIVITAMIN [Concomitant]
  3. VITAMIN D [Concomitant]
  4. ZOLOFT [Concomitant]
  5. FORTEO [Suspect]
     Dosage: 20 UG, QD
     Route: 058
  6. PLAQUENIL [Concomitant]
  7. ATIVAN [Concomitant]
  8. CALCIUM CARBONATE [Concomitant]
  9. SYNTHROID [Concomitant]
  10. FORTEO [Suspect]
     Indication: OSTEOPOROSIS
     Dosage: 20 UG, DAILY (1/D)
     Route: 058
     Dates: start: 20100407
  11. NEURONTIN [Concomitant]
  12. ZANTAC [Concomitant]

REACTIONS (15)
  - LOSS OF CONSCIOUSNESS [None]
  - OEDEMA PERIPHERAL [None]
  - SOMNOLENCE [None]
  - OVERDOSE [None]
  - BODY HEIGHT DECREASED [None]
  - BEDRIDDEN [None]
  - BACK PAIN [None]
  - LASER THERAPY [None]
  - ABASIA [None]
  - DEPRESSION [None]
  - WEIGHT INCREASED [None]
  - CONSTIPATION [None]
  - SPINAL FRACTURE [None]
  - NEUROPATHY PERIPHERAL [None]
  - INJECTION SITE PAIN [None]
